FAERS Safety Report 9841512 (Version 1)
Quarter: 2013Q4

REPORT INFORMATION
  Report Type: Spontaneous
  Country: US (occurrence: None)
  Receive Date: 20131211
  Receipt Date: 20131211
  Transmission Date: 20140711
  Serious: Yes (Other)
  Sender: FDA-Public Use
  Company Number: ALL1-2012-02541

PATIENT
  Age: 25 Year
  Sex: Female

DRUGS (2)
  1. VYVANSE (LISDEXAMFETAMINE DIMESYLATE) CAPSULE [Suspect]
     Route: 048
     Dates: start: 201011
  2. SAFYRAL(CALCIUM LEVOMEFOLATE, DROSPIRENONE, ETHINYLESTRADIOL BETADEX [Concomitant]

REACTIONS (3)
  - Depression [None]
  - Product quality issue [None]
  - Incorrect dose administered [None]
